FAERS Safety Report 8837269 (Version 1)
Quarter: 2012Q4

REPORT INFORMATION
  Report Type: 
  Country: US (occurrence: US)
  Receive Date: 20121012
  Receipt Date: 20121012
  Transmission Date: 20130627
  Serious: Yes (Other)
  Sender: FDA-Public Use
  Company Number: US-JNJFOC-20121004646

PATIENT
  Sex: Female

DRUGS (4)
  1. DOXORUBICIN [Suspect]
     Indication: BREAST CANCER
     Dosage: 4 cycles
     Route: 042
  2. BEVACIZUMAB [Suspect]
     Indication: BREAST CANCER
     Dosage: 1 year
     Route: 065
  3. CYCLOPHOSPHAMIDE [Suspect]
     Indication: BREAST CANCER
     Route: 065
  4. PACLITAXEL [Suspect]
     Indication: BREAST CANCER
     Route: 065

REACTIONS (3)
  - Hypertension [Unknown]
  - Impaired healing [Unknown]
  - Ejection fraction decreased [Unknown]
